FAERS Safety Report 9356650 (Version 2)
Quarter: 2013Q3

REPORT INFORMATION
  Report Type: Report from Study
  Country: CA (occurrence: CA)
  Receive Date: 20130619
  Receipt Date: 20130717
  Transmission Date: 20140515
  Serious: Yes (Hospitalization, Other)
  Sender: FDA-Public Use
  Company Number: CA-ABBOTT-13P-028-1105236-00

PATIENT
  Age: 85 Year
  Sex: Male

DRUGS (16)
  1. LUPRON DEPOT [Suspect]
     Indication: PROSTATE CANCER
     Route: 030
     Dates: start: 20120612
  2. BISOPROLOL [Concomitant]
     Indication: HYPERTENSION
     Route: 048
     Dates: start: 20080114
  3. VITAMIN B12 [Concomitant]
     Indication: ROUTINE HEALTH MAINTENANCE
     Route: 048
     Dates: start: 2012
  4. LASIX [Concomitant]
     Indication: CARDIAC FAILURE CONGESTIVE
     Route: 048
     Dates: start: 20080114, end: 20130530
  5. LASIX [Concomitant]
     Indication: CARDIAC FAILURE CONGESTIVE
     Route: 048
     Dates: start: 20130531
  6. LOVENOX [Concomitant]
     Indication: PULMONARY EMBOLISM
     Route: 058
     Dates: start: 201203, end: 201204
  7. NITRO-DUR [Concomitant]
     Indication: HYPERTENSION
     Route: 061
     Dates: start: 20080114, end: 20130228
  8. CANDESARTAN [Concomitant]
     Indication: HYPERTENSION
     Route: 048
     Dates: start: 20050330, end: 20121220
  9. AMLODIPINE [Concomitant]
     Indication: HYPERTENSION
     Route: 048
     Dates: start: 20090226, end: 20130530
  10. AMLODIPINE [Concomitant]
     Route: 048
     Dates: start: 20130531
  11. TERAZOSIN [Concomitant]
     Indication: BENIGN PROSTATIC HYPERPLASIA
     Route: 048
     Dates: start: 20051220, end: 20130530
  12. TERAZOSIN [Concomitant]
     Route: 048
     Dates: start: 20130531
  13. METFORMIN [Concomitant]
     Indication: DIABETES MELLITUS
     Route: 048
     Dates: start: 20030731, end: 201207
  14. WARFARIN [Concomitant]
     Indication: PROPHYLAXIS
     Dosage: 7.5 TO 10 MG ALTERNATING EVERY DAY
     Route: 048
     Dates: start: 20130531
  15. WARFARIN [Concomitant]
     Indication: CARDIAC OPERATION
  16. TRAMACET [Concomitant]
     Indication: PROCEDURAL PAIN
     Route: 048
     Dates: start: 20130531

REACTIONS (1)
  - Cardiac disorder [Recovered/Resolved]
